FAERS Safety Report 13459633 (Version 2)
Quarter: 2017Q2

REPORT INFORMATION
  Report Type: Report from Study
  Country: None (occurrence: US)
  Receive Date: 20170419
  Receipt Date: 20170622
  Transmission Date: 20170830
  Serious: Yes (Hospitalization)
  Sender: FDA-Public Use
  Company Number: US-ABBVIE-17K-163-1944560-00

PATIENT
  Sex: Male

DRUGS (2)
  1. HUMIRA [Suspect]
     Active Substance: ADALIMUMAB
     Indication: CROHN^S DISEASE
     Route: 058
  2. METOPROLOLO [Concomitant]
     Indication: HYPERTENSION

REACTIONS (7)
  - Fatigue [Unknown]
  - Night sweats [Unknown]
  - Drug ineffective [Not Recovered/Not Resolved]
  - Crohn^s disease [Recovering/Resolving]
  - Renal pain [Unknown]
  - Gastrointestinal inflammation [Unknown]
  - Abscess intestinal [Recovered/Resolved]

NARRATIVE: CASE EVENT DATE: 2017
